FAERS Safety Report 6245966-2 (Version None)
Quarter: 2009Q2

REPORT INFORMATION
  Report Type: 
  Country: None (occurrence: None)
  Receive Date: 20090626
  Receipt Date: 20080904
  Transmission Date: 20091009
  Serious: No
  Sender: FDA-Public Use
  Company Number: A0746125A

PATIENT
  Age: 29 Year
  Sex: Female

DRUGS (5)
  1. IMITREX [Suspect]
     Indication: MIGRAINE
     Dosage: 100MG TWICE PER DAY
     Route: 048
     Dates: start: 20040101, end: 20080501
  2. NEURONTIN [Concomitant]
  3. TOPAMAX [Concomitant]
  4. NAPROXEN [Concomitant]
  5. STEROID INJECTIONS [Concomitant]

REACTIONS (2)
  - DRUG INEFFECTIVE [None]
  - HEADACHE [None]
